FAERS Safety Report 7806832-1 (Version None)
Quarter: 2011Q4

REPORT INFORMATION
  Report Type: 
  Country: None (occurrence: None)
  Receive Date: 20111011
  Receipt Date: 20111007
  Transmission Date: 20120403
  Serious: Yes (Other)
  Sender: FDA-Public Use
  Company Number: US-PFIZER INC-2011240231

PATIENT
  Sex: Female
  Weight: 54.422 kg

DRUGS (11)
  1. FISH OIL [Concomitant]
     Indication: CARDIAC MURMUR
     Dosage: 1200 MG, DAILY
  2. CENTRUM SILVER [Concomitant]
     Indication: BONE DISORDER
  3. LOVASTATIN [Concomitant]
     Indication: BLOOD CHOLESTEROL ABNORMAL
     Dosage: 80 MG, DAILY
  4. ASCORBIC ACID [Concomitant]
     Indication: VITAMIN SUPPLEMENTATION
     Dosage: 500 IU, DAILY
  5. LOSARTAN [Concomitant]
     Indication: BLOOD PRESSURE ABNORMAL
     Dosage: 25 MG, DAILY
  6. VITAMIN E [Concomitant]
     Indication: VITAMIN SUPPLEMENTATION
     Dosage: 400 IU, DAILY
  7. ADVIL PM [Suspect]
     Dosage: UNK
     Route: 048
  8. ADVIL PM [Suspect]
     Indication: SLEEP DISORDER
     Dosage: 400 MG, DAILY
     Route: 048
     Dates: start: 20030901
  9. CENTRUM SILVER [Concomitant]
     Indication: CARDIAC DISORDER
     Dosage: UNK, DAILY
  10. CENTRUM SILVER [Concomitant]
     Indication: EYE DISORDER
  11. CALTRATE + D [Concomitant]
     Indication: OSTEOARTHRITIS
     Dosage: UNK

REACTIONS (1)
  - OSTEOARTHRITIS [None]
